FAERS Safety Report 4916078-2 (Version None)
Quarter: 2006Q1

REPORT INFORMATION
  Report Type: 
  Country: None (occurrence: None)
  Receive Date: 20060214
  Receipt Date: 20060201
  Transmission Date: 20060701
  Serious: Yes (Other)
  Sender: FDA-Public Use
  Company Number: 2003161760US

PATIENT
  Age: 39 Year
  Sex: Female
  Weight: 65.76 kg

DRUGS (4)
  1. CELEBREX [Suspect]
     Indication: CARPAL TUNNEL SYNDROME
     Dosage: 200 MG (100 MG, 2 IN 1 D), ORAL
     Route: 048
     Dates: start: 20020513, end: 20030401
  2. CELEBREX [Suspect]
     Indication: TENOSYNOVITIS
     Dosage: 200 MG (100 MG, 2 IN 1 D), ORAL
     Route: 048
     Dates: start: 20020513, end: 20030401
  3. BEXTRA [Suspect]
     Indication: CARPAL TUNNEL SYNDROME
     Dosage: 10 MG
     Dates: start: 20020620, end: 20020101
  4. ACETAMINOPHEN [Concomitant]

REACTIONS (53)
  - ACNE [None]
  - ADVERSE DRUG REACTION [None]
  - ALOPECIA [None]
  - ANTINUCLEAR ANTIBODY POSITIVE [None]
  - ARTHRALGIA [None]
  - ARTHRITIS [None]
  - ASTHENIA [None]
  - AUTOIMMUNE DISORDER [None]
  - BREAST MASS [None]
  - BREAST PAIN [None]
  - BUTTOCK PAIN [None]
  - CARDIAC DISORDER [None]
  - CARDIAC MURMUR [None]
  - CHILLS [None]
  - DNA ANTIBODY POSITIVE [None]
  - DRUG HYPERSENSITIVITY [None]
  - DRY MOUTH [None]
  - DYSPNOEA [None]
  - ERYTHEMA [None]
  - EXCORIATION [None]
  - FALL [None]
  - FATIGUE [None]
  - FEELING HOT [None]
  - FLATULENCE [None]
  - FURUNCLE [None]
  - HAEMORRHAGE [None]
  - HEADACHE [None]
  - HEART RATE INCREASED [None]
  - HEPATIC FUNCTION ABNORMAL [None]
  - IMPAIRED WORK ABILITY [None]
  - INFLUENZA LIKE ILLNESS [None]
  - LEUKOPENIA [None]
  - LIVER DISORDER [None]
  - LIVER FUNCTION TEST ABNORMAL [None]
  - LUPUS-LIKE SYNDROME [None]
  - LYMPHADENOPATHY [None]
  - LYMPHOPENIA [None]
  - MUSCLE ATROPHY [None]
  - MUSCULAR WEAKNESS [None]
  - NAIL DISCOLOURATION [None]
  - OEDEMA [None]
  - OEDEMA PERIPHERAL [None]
  - PRURITUS [None]
  - RASH [None]
  - RED BLOOD CELL SEDIMENTATION RATE INCREASED [None]
  - RENAL DISORDER [None]
  - SKIN BURNING SENSATION [None]
  - SKIN DISORDER [None]
  - SKIN LACERATION [None]
  - STOMATITIS [None]
  - SWELLING [None]
  - URTICARIA [None]
  - WEIGHT INCREASED [None]
